FAERS Safety Report 7384566-8 (Version None)
Quarter: 2011Q1

REPORT INFORMATION
  Report Type: 
  Country: None (occurrence: None)
  Receive Date: 20110330
  Receipt Date: 20110324
  Transmission Date: 20110831
  Serious: Yes (Life-Threatening, Hospitalization)
  Sender: FDA-Public Use
  Company Number: GB-TEVA-273427ISR

PATIENT
  Age: 29 Year
  Sex: Male
  Weight: 88 kg

DRUGS (1)
  1. OXALIPLATIN [Suspect]
     Route: 042
     Dates: start: 20101221, end: 20101221

REACTIONS (3)
  - PORTAL VEIN THROMBOSIS [None]
  - ABDOMINAL PAIN [None]
  - PYREXIA [None]
